FAERS Safety Report 11725136 (Version 1)
Quarter: 2015Q4

REPORT INFORMATION
  Report Type: Spontaneous
  Country: US (occurrence: US)
  Receive Date: 20151111
  Receipt Date: 20151111
  Transmission Date: 20160304
  Serious: No
  Sender: FDA-Public Use
  Company Number: US-UCBSA-2015014800

PATIENT
  Age: 42 Year
  Sex: Female

DRUGS (3)
  1. TOPIRAMATE. [Concomitant]
     Active Substance: TOPIRAMATE
     Indication: JUVENILE MYOCLONIC EPILEPSY
     Dosage: UNKNOWN DOSE
  2. TOPIRAMATE. [Concomitant]
     Active Substance: TOPIRAMATE
     Dosage: DOSE ADJUSTMENTS
  3. LACOSAMIDE [Suspect]
     Active Substance: LACOSAMIDE
     Indication: JUVENILE MYOCLONIC EPILEPSY
     Dosage: UNKNOWN DOSE

REACTIONS (1)
  - Myoclonus [Recovered/Resolved]
